FAERS Safety Report 24741786 (Version 1)
Quarter: 2024Q4

REPORT INFORMATION
  Report Type: Spontaneous
  Country: US (occurrence: US)
  Receive Date: 20241217
  Receipt Date: 20241217
  Transmission Date: 20250115
  Serious: Yes (Death, Other)
  Sender: DAIICHI
  Company Number: US-DSJP-DS-2024-112680-US

PATIENT
  Sex: Male

DRUGS (1)
  1. ENHERTU [Suspect]
     Active Substance: FAM-TRASTUZUMAB DERUXTECAN-NXKI
     Indication: HER2 gene amplification
     Dosage: UNK, ONCE EVERY 3 WK
     Route: 042

REACTIONS (2)
  - Death [Fatal]
  - Cytopenia [Unknown]
